FAERS Safety Report 6998930-X (Version None)
Quarter: 2010Q3

REPORT INFORMATION
  Report Type: 
  Country: None (occurrence: None)
  Receive Date: 20100920
  Receipt Date: 20070625
  Transmission Date: 20110219
  Serious: Yes (Hospitalization, Other)
  Sender: FDA-Public Use
  Company Number: US-ASTRAZENECA-2006UW24200

PATIENT
  Sex: Female

DRUGS (16)
  1. SEROQUEL [Suspect]
     Indication: SCHIZOPHRENIA
     Route: 048
     Dates: start: 20060821
  2. ATENOLOL [Concomitant]
     Dosage: 50-100 MG
     Route: 048
     Dates: start: 20020913
  3. ATIVAN [Concomitant]
     Dosage: 0.5-3 MG
     Dates: start: 20020913
  4. PAXIL [Concomitant]
     Dates: start: 20020913
  5. ALLEGRA D 24 HOUR [Concomitant]
     Indication: HYPERSENSITIVITY
     Dates: start: 20020913
  6. GLUCOPHAGE [Concomitant]
     Indication: DIABETES MELLITUS
     Dosage: 500-2000 MG
     Dates: start: 20030630
  7. ZYPREXA [Concomitant]
     Dosage: DAILY
     Dates: start: 20020913
  8. GLYBURIDE [Concomitant]
     Indication: DIABETES MELLITUS
     Dosage: 5-20 MG
     Dates: start: 20020913
  9. GLUCOVANCE [Concomitant]
     Dosage: 5-500 MG, BID
     Route: 048
     Dates: start: 20021231
  10. AMANTADINE [Concomitant]
     Dates: start: 19931026
  11. PLENDIL [Concomitant]
     Dates: start: 20051114
  12. INDERAL [Concomitant]
     Indication: TARDIVE DYSKINESIA
     Dates: start: 20051114
  13. INDERAL [Concomitant]
     Indication: AKATHISIA
     Dates: start: 20051114
  14. MAXZIDE [Concomitant]
     Indication: BLOOD PRESSURE
     Dosage: 75/50-37.5/25 MG, DAILY
     Dates: start: 20020913
  15. TRAZODONE HCL [Concomitant]
     Dosage: NIGHTLY
  16. LISINOPRIL [Concomitant]
     Dates: start: 20040126

REACTIONS (3)
  - DIABETES MELLITUS [None]
  - PANCREATITIS [None]
  - TARDIVE DYSKINESIA [None]
